FAERS Safety Report 21608921 (Version 1)
Quarter: 2022Q4

REPORT INFORMATION
  Report Type: Spontaneous
  Country: US (occurrence: None)
  Receive Date: 20221116
  Receipt Date: 20221116
  Transmission Date: 20230113
  Serious: Yes (unspecified)
  Sender: FDA-Public Use
  Company Number: None

PATIENT
  Age: 63 Year
  Sex: Male
  Weight: 52.65 kg

DRUGS (1)
  1. ZEPZELCA [Suspect]
     Active Substance: LURBINECTEDIN
     Indication: Lung neoplasm malignant
     Dosage: ?5 MG EVERY THREE WEEKS INTRAVENOUS
     Route: 042
     Dates: start: 20220428, end: 20221003

REACTIONS (5)
  - Peripheral swelling [None]
  - Injection site erythema [None]
  - Blister [None]
  - Skin weeping [None]
  - Wound treatment [None]

NARRATIVE: CASE EVENT DATE: 20221003
